FAERS Safety Report 24675387 (Version 2)
Quarter: 2024Q4

REPORT INFORMATION
  Report Type: Spontaneous
  Country: GR (occurrence: GR)
  Receive Date: 20241128
  Receipt Date: 20241202
  Transmission Date: 20250114
  Serious: Yes (Other)
  Sender: PFIZER
  Company Number: GR-AMGEN-GRCSP2024223065

PATIENT
  Age: 64 Year
  Sex: Male

DRUGS (2)
  1. ENCORAFENIB [Suspect]
     Active Substance: ENCORAFENIB
     Indication: Colorectal cancer metastatic
     Dosage: UNK
     Route: 065
  2. PANITUMUMAB [Suspect]
     Active Substance: PANITUMUMAB
     Indication: Colorectal cancer metastatic
     Dosage: UNK
     Route: 065

REACTIONS (5)
  - Lichenoid keratosis [Unknown]
  - Melanocytic naevus [Unknown]
  - Second primary malignancy [Recovering/Resolving]
  - Keratoacanthoma [Recovering/Resolving]
  - Neoplasm progression [Unknown]
